FAERS Safety Report 10175718 (Version 1)
Quarter: 2014Q2

REPORT INFORMATION
  Report Type: Spontaneous
  Country: GB (occurrence: GB)
  Receive Date: 20140516
  Receipt Date: 20140516
  Transmission Date: 20141212
  Serious: Yes (Other)
  Sender: FDA-Public Use
  Company Number: GB-JNJFOC-20140506126

PATIENT
  Age: 47 Year
  Sex: Female
  Weight: 76.2 kg

DRUGS (4)
  1. PHENYLEPHRINE HYDROCHLORIDE [Suspect]
     Indication: SINUS CONGESTION
     Route: 048
     Dates: start: 20140425, end: 20140427
  2. TRAMADOL HYDROCHLORIDE [Concomitant]
     Indication: PRODUCT USED FOR UNKNOWN INDICATION
  3. VENTOLIN [Concomitant]
     Indication: PRODUCT USED FOR UNKNOWN INDICATION
     Route: 065
  4. QVAR [Concomitant]
     Indication: PRODUCT USED FOR UNKNOWN INDICATION

REACTIONS (5)
  - Feeling drunk [Not Recovered/Not Resolved]
  - Hypersomnia [Not Recovered/Not Resolved]
  - Feeling abnormal [Not Recovered/Not Resolved]
  - Asthenia [Not Recovered/Not Resolved]
  - Asthenia [Recovering/Resolving]
